FAERS Safety Report 10418809 (Version 1)
Quarter: 2014Q3

REPORT INFORMATION
  Report Type: Spontaneous
  Country: DE (occurrence: DE)
  Receive Date: 20140829
  Receipt Date: 20140829
  Transmission Date: 20150326
  Serious: Yes (Other)
  Sender: FDA-Public Use
  Company Number: GXKR2014DE003320

PATIENT

DRUGS (4)
  1. METFORMIN [Suspect]
     Active Substance: METFORMIN HYDROCHLORIDE
     Indication: POLYCYSTIC OVARIES
     Dosage: 2000 [MG/D ]
     Route: 048
     Dates: start: 20130605, end: 20131125
  2. BLOPRESS [Suspect]
     Active Substance: CANDESARTAN CILEXETIL
     Indication: HYPERTENSION
     Dosage: 4 [MG/D ]
     Route: 048
     Dates: start: 20130605, end: 20131125
  3. PRESINOL [Concomitant]
     Active Substance: METHYLDOPA
     Indication: HYPERTENSION
     Dosage: 1000 [MG/D ]
     Route: 048
     Dates: start: 20131126, end: 20140223
  4. L-THYROX [Concomitant]
     Indication: HYPOTHYROIDISM
     Dosage: 125 [?G/D ]
     Route: 048
     Dates: start: 20130605, end: 20140223

REACTIONS (1)
  - Oligohydramnios [Recovered/Resolved]
